FAERS Safety Report 10163681 (Version 1)
Quarter: 2014Q2

REPORT INFORMATION
  Report Type: Spontaneous
  Country: CO (occurrence: CO)
  Receive Date: 20140509
  Receipt Date: 20140509
  Transmission Date: 20141212
  Serious: Yes (Other)
  Sender: FDA-Public Use
  Company Number: CO-BAXTER-2014BAX022013

PATIENT
  Age: 48 Year
  Sex: 0

DRUGS (1)
  1. SEVOFLURANO [Suspect]
     Indication: ANAESTHESIA PROCEDURE
     Route: 055
     Dates: start: 20140408, end: 20140408

REACTIONS (1)
  - Unwanted awareness during anaesthesia [Recovered/Resolved]
